FAERS Safety Report 12735756 (Version 2)
Quarter: 2016Q3

REPORT INFORMATION
  Report Type: Spontaneous
  Country: US (occurrence: US)
  Receive Date: 20160912
  Receipt Date: 20160916
  Transmission Date: 20161109
  Serious: Yes (Hospitalization)
  Sender: FDA-Public Use
  Company Number: US-HORIZON-ACT-0210-2016

PATIENT
  Age: 9 Year
  Sex: Female
  Weight: 27.7 kg

DRUGS (1)
  1. ACTIMMUNE [Suspect]
     Active Substance: INTERFERON GAMMA-1B
     Indication: NEUTROPHIL FUNCTION DISORDER
     Dosage: 0.04 ML TIW
     Dates: start: 201012

REACTIONS (1)
  - Ill-defined disorder [Unknown]
